FAERS Safety Report 5284854-5 (Version None)
Quarter: 2007Q2

REPORT INFORMATION
  Report Type: 
  Country: None (occurrence: None)
  Receive Date: 20070403
  Receipt Date: 20070320
  Transmission Date: 20071010
  Serious: Yes (Death, Life-Threatening)
  Sender: FDA-Public Use
  Company Number: CA-JNJFOC-20060405594

PATIENT
  Sex: Female
  Weight: 46 kg

DRUGS (5)
  1. REMICADE [Suspect]
     Dosage: 24TH INFUSION
     Route: 042
  2. REMICADE [Suspect]
     Indication: CROHN'S DISEASE
     Route: 042
  3. BENADRYL [Concomitant]
     Indication: PREMEDICATION
     Route: 042
  4. TYLENOL [Concomitant]
     Indication: PREMEDICATION
     Route: 048
  5. GRAVOL TAB [Concomitant]
     Indication: PREMEDICATION
     Route: 042

REACTIONS (3)
  - DEATH [None]
  - FATIGUE [None]
  - JAUNDICE [None]
